FAERS Safety Report 6816716-3 (Version None)
Quarter: 2010Q3

REPORT INFORMATION
  Report Type: 
  Country: None (occurrence: None)
  Receive Date: 20100706
  Receipt Date: 20100630
  Transmission Date: 20110219
  Serious: Yes (Disabling)
  Sender: FDA-Public Use
  Company Number: AU-WYE-G06205110

PATIENT
  Age: 25 Year
  Sex: Female
  Weight: 70 kg

DRUGS (2)
  1. PRISTIQ [Suspect]
     Indication: HEADACHE
     Dosage: 50MG, THEN TRYING TO DISCONTINUE WITH A SCHEDULE OF 28 HOURS, 30 HOURS, 32 HOURS ETC
     Route: 048
  2. XANAX [Concomitant]
     Indication: ANXIETY
     Dosage: TOTAL DAILY DOSE 1 MG
     Route: 048

REACTIONS (8)
  - ANXIETY [None]
  - CONDITION AGGRAVATED [None]
  - DIZZINESS [None]
  - DRUG WITHDRAWAL SYNDROME [None]
  - EMOTIONAL DISTRESS [None]
  - IMPAIRED WORK ABILITY [None]
  - NAUSEA [None]
  - TREMOR [None]
